FAERS Safety Report 7224940-3 (Version None)
Quarter: 2011Q1

REPORT INFORMATION
  Report Type: 
  Country: None (occurrence: None)
  Receive Date: 20110113
  Receipt Date: 20110104
  Transmission Date: 20110831
  Serious: Yes (Other)
  Sender: FDA-Public Use
  Company Number: CA-JNJCH-2010027354

PATIENT
  Sex: Male
  Weight: 36.3 kg

DRUGS (1)
  1. BENADRYL CHILDREN'S ALLERGY MELTAWAYS TABLETS [Suspect]
     Indication: RASH
     Dosage: TEXT:TWO MELTAWAYS TWICE
     Route: 048
     Dates: start: 20100922, end: 20100922

REACTIONS (3)
  - OFF LABEL USE [None]
  - SYNCOPE [None]
  - PRODUCT QUALITY ISSUE [None]
